FAERS Safety Report 7119862-2 (Version None)
Quarter: 2010Q4

REPORT INFORMATION
  Report Type: 
  Country: None (occurrence: None)
  Receive Date: 20101123
  Receipt Date: 20100916
  Transmission Date: 20110411
  Serious: No
  Sender: FDA-Public Use
  Company Number: US-BRISTOL-MYERS SQUIBB COMPANY-15288731

PATIENT
  Age: 72 Year
  Sex: Female
  Weight: 65 kg

DRUGS (3)
  1. ONGLYZA [Suspect]
     Dosage: THERAPY STARTED:ABOUT A WEEK AGO
  2. GLYBURIDE [Concomitant]
     Dosage: THERAPY:FOR A FEW WEEKS
  3. PREDNISONE [Concomitant]

REACTIONS (1)
  - BLOOD GLUCOSE FLUCTUATION [None]
